FAERS Safety Report 9537674 (Version 1)
Quarter: 2013Q3

REPORT INFORMATION
  Report Type: Spontaneous
  Country: US (occurrence: US)
  Receive Date: 20130919
  Receipt Date: 20130919
  Transmission Date: 20140515
  Serious: Yes (Hospitalization)
  Sender: FDA-Public Use
  Company Number: US-ELI_LILLY_AND_COMPANY-US201309002413

PATIENT
  Age: 55 Year
  Sex: Male

DRUGS (4)
  1. HUMULIN NPH [Suspect]
     Indication: DIABETES MELLITUS
     Dosage: 16 U, TID
  2. INSULIN HUMAN [Suspect]
     Indication: DIABETES MELLITUS
     Dosage: UNK, TID
  3. SIMVASTATIN [Concomitant]
  4. LEVOTHYROXINE [Concomitant]
     Dosage: UNK

REACTIONS (6)
  - Pernicious anaemia [Unknown]
  - Blood glucose abnormal [Unknown]
  - Somnolence [Unknown]
  - Tremor [Unknown]
  - Dizziness [Unknown]
  - Muscle contractions involuntary [Unknown]
